FAERS Safety Report 23452264 (Version 2)
Quarter: 2024Q1

REPORT INFORMATION
  Report Type: Spontaneous
  Country: FR (occurrence: FR)
  Receive Date: 20240129
  Receipt Date: 20240228
  Transmission Date: 20240409
  Serious: Yes (Hospitalization, Other)
  Sender: FDA-Public Use
  Company Number: None

PATIENT
  Age: 77 Year
  Sex: Female
  Weight: 62 kg

DRUGS (12)
  1. BROMAZEPAM [Suspect]
     Active Substance: BROMAZEPAM
     Indication: Intentional overdose
     Dosage: UNK
     Route: 048
     Dates: start: 20231217, end: 20231217
  2. FLUOXETINE [Suspect]
     Active Substance: FLUOXETINE HYDROCHLORIDE
     Indication: Intentional overdose
     Dosage: 20 MG IN 1 DAY, 2-0-0
     Route: 065
  3. ACETAMINOPHEN\OPIUM [Suspect]
     Active Substance: ACETAMINOPHEN\OPIUM
     Indication: Intentional overdose
     Dosage: 16 DF IN 1 TOTAL, 1 BOTTLE
     Route: 048
     Dates: start: 20231217, end: 20231217
  4. MIRTAZAPINE [Suspect]
     Active Substance: MIRTAZAPINE
     Indication: Intentional overdose
     Dosage: 30 DF IN 1 TOTAL, 1 BOX 15 MG, 0-0-2
     Route: 048
     Dates: start: 20231217, end: 20231217
  5. OXAZEPAM [Suspect]
     Active Substance: OXAZEPAM
     Indication: Intentional overdose
     Dosage: 150 DF IN 1 TOTAL, 5 BOXES, 1-1-1
     Route: 048
     Dates: start: 20231217, end: 20231217
  6. OXAZEPAM [Suspect]
     Active Substance: OXAZEPAM
     Dosage: 50 MG IN 1 DAY, 0-0-1
     Route: 048
  7. ZOPICLONE [Suspect]
     Active Substance: ZOPICLONE
     Indication: Intentional overdose
     Dosage: 3.75 MG, 0-0-1
     Route: 048
     Dates: start: 20231217, end: 20231217
  8. AMLODIPINE [Concomitant]
     Active Substance: AMLODIPINE BESYLATE
     Indication: Product used for unknown indication
     Dosage: 5 MG IN 1 DAY, 0-0-1
     Route: 065
  9. CHOLECALCIFEROL [Concomitant]
     Active Substance: CHOLECALCIFEROL
     Indication: Cystitis
     Dosage: 1000000 IU, Q3MO
     Route: 065
  10. FOSFOMYCIN [Concomitant]
     Active Substance: FOSFOMYCIN
     Indication: Cystitis
     Dosage: 3 G, 1 SACHET IF CYSTITIS
     Route: 065
  11. LIPITOR [Concomitant]
     Active Substance: ATORVASTATIN CALCIUM
     Indication: Product used for unknown indication
     Dosage: 10 MG IN 1 DAY, 0-01
     Route: 065
  12. TAHOR [Concomitant]
     Active Substance: ATORVASTATIN CALCIUM
     Indication: Product used for unknown indication
     Dosage: 10 MG IN 1 DAY, 0-0--1
     Route: 065

REACTIONS (3)
  - Poisoning deliberate [Recovered/Resolved]
  - Coma [Recovered/Resolved]
  - Hypokalaemia [Unknown]

NARRATIVE: CASE EVENT DATE: 20231217
